FAERS Safety Report 14599553 (Version 3)
Quarter: 2018Q2

REPORT INFORMATION
  Report Type: Report from Study
  Country: CA (occurrence: CA)
  Receive Date: 20180305
  Receipt Date: 20180411
  Transmission Date: 20180711
  Serious: Yes (Hospitalization)
  Sender: FDA-Public Use
  Company Number: CA-HLSUS-2017-CA-001309

PATIENT
  Sex: Female

DRUGS (5)
  1. INDERAL [Concomitant]
     Active Substance: PROPRANOLOL HYDROCHLORIDE
     Dosage: 10 MG TWICE DAILY
     Route: 048
     Dates: start: 20180227, end: 20180228
  2. RIVOTRIL [Concomitant]
     Active Substance: CLONAZEPAM
     Indication: AGITATION
     Dosage: 0.5 MG 2 TABLETS ORALLY AT BEDTIME AS NEEDED AND 0.5 MG 1 TABLET ORALLY IN THE MORNING
     Route: 048
  3. LATUDA [Concomitant]
     Active Substance: LURASIDONE HYDROCHLORIDE
     Dosage: 40 MG 1 TABLET AT SUPER
     Route: 048
  4. ZYPREXA ZYDIS [Concomitant]
     Active Substance: OLANZAPINE
     Indication: AGITATION
     Dosage: 5MG 1 TABLET THRICE DAILY AND 10 MG AS NEEDED AT BEDTIME
  5. CLOZARIL [Suspect]
     Active Substance: CLOZAPINE
     Route: 048
     Dates: end: 20180222

REACTIONS (4)
  - White blood cell count decreased [Unknown]
  - Neutropenia [Unknown]
  - Schizophrenia [Unknown]
  - Treatment noncompliance [Unknown]
